FAERS Safety Report 17866494 (Version 1)
Quarter: 2020Q2

REPORT INFORMATION
  Report Type: Spontaneous
  Country: US (occurrence: US)
  Receive Date: 20200605
  Receipt Date: 20200605
  Transmission Date: 20200714
  Serious: No
  Sender: FDA-Public Use
  Company Number: US-009507513-2005USA001836

PATIENT
  Age: 48 Year
  Sex: Female

DRUGS (2)
  1. PHENAZOPYRIDINE HYDROCHLORIDE. [Concomitant]
     Active Substance: PHENAZOPYRIDINE HYDROCHLORIDE
     Indication: CYSTITIS HAEMORRHAGIC
  2. REBETOL [Suspect]
     Active Substance: RIBAVIRIN
     Indication: RESPIRATORY SYNCYTIAL VIRUS INFECTION
     Dosage: UNK
     Route: 048

REACTIONS (1)
  - Off label use [Unknown]
